FAERS Safety Report 8500666-0 (Version None)
Quarter: 2012Q3

REPORT INFORMATION
  Report Type: 
  Country: None (occurrence: None)
  Receive Date: 20120710
  Receipt Date: 20120703
  Transmission Date: 20120928
  Serious: Yes (Hospitalization)
  Sender: FDA-Public Use
  Company Number: US-ROCHE-1084538

PATIENT
  Sex: Female
  Weight: 42.676 kg

DRUGS (2)
  1. XELODA [Suspect]
     Indication: PANCREATIC CARCINOMA
     Route: 048
     Dates: start: 20120326, end: 20120622
  2. CREON [Concomitant]
     Route: 048

REACTIONS (2)
  - INTESTINAL ULCER PERFORATION [None]
  - LARGE INTESTINE OPERATION [None]
